FAERS Safety Report 18692944 (Version 2)
Quarter: 2021Q1

REPORT INFORMATION
  Report Type: Report from Study
  Country: CA (occurrence: CA)
  Receive Date: 20210104
  Receipt Date: 20210218
  Transmission Date: 20210419
  Serious: Yes (Other)
  Sender: FDA-Public Use
  Company Number: CA-JNJFOC-20201255115

PATIENT
  Age: 46 Year
  Sex: Female

DRUGS (2)
  1. STELARA [Suspect]
     Active Substance: USTEKINUMAB
     Indication: HIDRADENITIS
     Route: 058
     Dates: start: 20201102
  2. STELARA [Suspect]
     Active Substance: USTEKINUMAB

REACTIONS (4)
  - Hidradenitis [Not Recovered/Not Resolved]
  - Product use in unapproved indication [Unknown]
  - Abscess [Unknown]
  - Off label use [Unknown]

NARRATIVE: CASE EVENT DATE: 2020
